FAERS Safety Report 10569009 (Version 3)
Quarter: 2015Q1

REPORT INFORMATION
  Report Type: Spontaneous
  Country: FR (occurrence: FR)
  Receive Date: 20141106
  Receipt Date: 20150115
  Transmission Date: 20150720
  Serious: Yes (Hospitalization, Other)
  Sender: FDA-Public Use
  Company Number: FR-GLAXOSMITHKLINE-FR2014GSK000126

PATIENT

DRUGS (2)
  1. COMBIVIR [Suspect]
     Active Substance: LAMIVUDINE\ZIDOVUDINE
     Indication: PRODUCT USED FOR UNKNOWN INDICATION
     Dosage: UNK
     Route: 048
     Dates: start: 20110718, end: 20131025
  2. REYATAZ [Suspect]
     Active Substance: ATAZANAVIR SULFATE
     Indication: PRODUCT USED FOR UNKNOWN INDICATION
     Dosage: UNK
     Route: 048
     Dates: start: 20110718, end: 20131025

REACTIONS (8)
  - Jaundice [Unknown]
  - Portal hypertension [Unknown]
  - Haemochromatosis [Unknown]
  - Cholestasis [Recovered/Resolved]
  - Hepatocellular injury [Recovered/Resolved]
  - Collateral circulation [Unknown]
  - Blood bilirubin increased [Recovered/Resolved]
  - Hepatitis toxic [Unknown]

NARRATIVE: CASE EVENT DATE: 20111013
